FAERS Safety Report 5026055-1 (Version None)
Quarter: 2006Q2

REPORT INFORMATION
  Report Type: 
  Country: None (occurrence: None)
  Receive Date: 20060614
  Receipt Date: 20060608
  Transmission Date: 20061013
  Serious: Yes (Death)
  Sender: FDA-Public Use
  Company Number: US-SANOFI-SYNTHELABO-F03200600120

PATIENT
  Sex: Male
  Weight: 79 kg

DRUGS (9)
  1. ANGIOMAX [Suspect]
     Indication: PROPHYLAXIS
     Dosage: 28 ML/HR INTRAVEOUSLY
     Route: 042
     Dates: start: 20060421, end: 20060421
  2. LIPITOR [Concomitant]
     Dosage: UNK
     Route: 048
  3. ASPIRIN [Suspect]
     Indication: PROPHYLAXIS
     Dosage: UNK
     Route: 048
     Dates: start: 20060421
  4. INTEGRILIN [Suspect]
     Indication: PROPHYLAXIS
     Dosage: 13 ML/HR INTRAVENOUSLY UNK
     Route: 042
     Dates: start: 20060421, end: 20060421
  5. COREG [Concomitant]
     Dosage: UNK
     Route: 048
  6. ALTACE [Concomitant]
     Dosage: UNK
     Route: 048
  7. PLAVIX [Suspect]
     Indication: PERCUTANEOUS CORONARY INTERVENTION
     Dosage: 4 CAPSULES
     Route: 048
     Dates: start: 20060421, end: 20060421
  8. CANGRELOR [Suspect]
     Indication: PERCUTANEOUS CORONARY INTERVENTION
     Dosage: 46.2 ML / HR INTRAVENOUS
     Route: 042
     Dates: start: 20060421, end: 20060421
  9. CANGRELOR [Suspect]
     Dosage: 5.8 ML BOLUS INTRAVENOUSLY
     Route: 040
     Dates: start: 20060421, end: 20060421

REACTIONS (2)
  - BLOOD PRESSURE INCREASED [None]
  - CEREBRAL HAEMORRHAGE [None]
